FAERS Safety Report 16559912 (Version 4)
Quarter: 2019Q3

REPORT INFORMATION
  Report Type: Spontaneous
  Country: JP (occurrence: JP)
  Receive Date: 20190711
  Receipt Date: 20190913
  Transmission Date: 20191004
  Serious: Yes (Death, Hospitalization, Other)
  Sender: FDA-Public Use
  Company Number: JP-ASTRAZENECA-2019SE96845

PATIENT
  Age: 24476 Day
  Sex: Female
  Weight: 38 kg

DRUGS (6)
  1. GLYCEOL [Suspect]
     Active Substance: GLYCERIN
     Indication: METASTASES TO CENTRAL NERVOUS SYSTEM
     Route: 041
     Dates: start: 20190224, end: 20190322
  2. DECADRON [Suspect]
     Active Substance: DEXAMETHASONE
     Indication: METASTASES TO CENTRAL NERVOUS SYSTEM
     Route: 041
     Dates: start: 20190220, end: 20190701
  3. FAMOTIDINE. [Suspect]
     Active Substance: FAMOTIDINE
     Route: 041
     Dates: start: 20190220, end: 20190701
  4. TAGRISSO [Suspect]
     Active Substance: OSIMERTINIB
     Indication: NON-SMALL CELL LUNG CANCER
     Route: 048
     Dates: start: 20190306, end: 20190430
  5. CEFMETAZOLE SODIUM [Suspect]
     Active Substance: CEFMETAZOLE SODIUM
     Indication: RESPIRATORY TRACT INFECTION
     Route: 041
     Dates: start: 20190304, end: 20190310
  6. NEO-MINOPHAGEN C [Suspect]
     Active Substance: AMMONIUM GLYCYRRHIZATE
     Route: 041
     Dates: start: 20190307, end: 20190701

REACTIONS (2)
  - Malignant neoplasm progression [Fatal]
  - Hepatic function abnormal [Recovered/Resolved]

NARRATIVE: CASE EVENT DATE: 20190430
